FAERS Safety Report 8896209 (Version 2)
Quarter: 2013Q1

REPORT INFORMATION
  Report Type: Spontaneous
  Country: US (occurrence: US)
  Receive Date: 20121108
  Receipt Date: 20130128
  Transmission Date: 20140127
  Serious: Yes (Hospitalization, Other)
  Sender: FDA-Public Use
  Company Number: US-ASTRAZENECA-2010SE21745

PATIENT
  Age: 51 Year
  Sex: Female

DRUGS (1)
  1. NEXIUM [Suspect]
     Indication: GASTROOESOPHAGEAL REFLUX DISEASE
     Route: 048
     Dates: start: 20060921

REACTIONS (5)
  - Laryngeal polyp [Recovered/Resolved]
  - Breast cancer female [Unknown]
  - Haemoptysis [Unknown]
  - Malaise [Unknown]
  - Drug dose omission [Unknown]
